FAERS Safety Report 25960840 (Version 1)
Quarter: 2025Q4

REPORT INFORMATION
  Report Type: Spontaneous
  Country: US (occurrence: US)
  Receive Date: 20251027
  Receipt Date: 20251027
  Transmission Date: 20260118
  Serious: Yes (Disabling, Other)
  Sender: ALVOGEN
  Company Number: US-BMS-IMIDS-REMS_SI-1760375173942

PATIENT
  Sex: Female

DRUGS (1)
  1. LENALIDOMIDE [Suspect]
     Active Substance: LENALIDOMIDE
     Indication: Product used for unknown indication
     Dosage: 2.5 MG

REACTIONS (3)
  - Disability [Unknown]
  - Premature menopause [Unknown]
  - Product dose omission issue [Unknown]
